FAERS Safety Report 9957100 (Version 1)
Quarter: 2014Q1

REPORT INFORMATION
  Report Type: Report from Study
  Country: US (occurrence: US)
  Receive Date: 20140304
  Receipt Date: 20140304
  Transmission Date: 20141002
  Serious: No
  Sender: FDA-Public Use
  Company Number: US-ABBVIE-13P-163-1097746-00

PATIENT
  Age: 48 Year
  Sex: Male

DRUGS (4)
  1. HUMIRA [Suspect]
     Indication: PSORIASIS
     Dates: start: 20130308, end: 20130308
  2. HUMIRA [Suspect]
     Dates: start: 20130315
  3. ANTIHYPERTENSIVES [Concomitant]
     Indication: PRODUCT USED FOR UNKNOWN INDICATION
  4. CHOLESTEROL [Concomitant]
     Indication: PRODUCT USED FOR UNKNOWN INDICATION

REACTIONS (9)
  - Chest discomfort [Unknown]
  - Joint swelling [Unknown]
  - Arthralgia [Unknown]
  - Joint lock [Unknown]
  - Osteoarthritis [Unknown]
  - Infection [Unknown]
  - Non-cardiac chest pain [Unknown]
  - Dyspnoea [Unknown]
  - Dyspepsia [Unknown]
